FAERS Safety Report 4424853-6 (Version None)
Quarter: 2004Q3

REPORT INFORMATION
  Report Type: 
  Country: None (occurrence: None)
  Receive Date: 20040812
  Receipt Date: 20040503
  Transmission Date: 20050211
  Serious: Yes (Hospitalization)
  Sender: FDA-Public Use
  Company Number: US-MERCK-0405USA00119

PATIENT
  Sex: Female

DRUGS (1)
  1. VIOXX [Suspect]
     Indication: OSTEOPOROSIS
     Route: 048

REACTIONS (1)
  - HAEMOGLOBIN DECREASED [None]
